FAERS Safety Report 5012014-1 (Version None)
Quarter: 2006Q2

REPORT INFORMATION
  Report Type: 
  Country: None (occurrence: None)
  Receive Date: 20060524
  Receipt Date: 20060510
  Transmission Date: 20061013
  Serious: Yes (Death, Hospitalization)
  Sender: FDA-Public Use
  Company Number: 028-C5013-06040827

PATIENT
  Age: 66 Year
  Sex: Female
  Weight: 83.6 kg

DRUGS (11)
  1. REVLIMID [Suspect]
     Indication: MULTIPLE MYELOMA
     Dosage: 25 MG, OD,ORAL
     Route: 048
     Dates: start: 20060113, end: 20060421
  2. DEXAMETHASONE [Suspect]
     Indication: MULTIPLE MYELOMA
     Dosage: ORAL
     Route: 048
     Dates: start: 20060113, end: 20060209
  3. PREDNISONE TAB [Concomitant]
  4. CIPROFLOXACIN HCL [Concomitant]
  5. CRESTOR [Concomitant]
  6. ANTENOLOL (ANTENOLOL) [Concomitant]
  7. ESTROGEN (ESTROGEN NOS) [Concomitant]
  8. GLYBURIDE [Concomitant]
  9. ALTACE [Concomitant]
  10. LOSEC (OMEPRAZOLE) [Concomitant]
  11. ASPIRIN [Concomitant]

REACTIONS (7)
  - DRUG INEFFECTIVE [None]
  - FEBRILE NEUTROPENIA [None]
  - PANCYTOPENIA [None]
  - PNEUMONIA [None]
  - RIB FRACTURE [None]
  - SINUSITIS [None]
  - SPINAL COMPRESSION FRACTURE [None]
